FAERS Safety Report 6419302-2 (Version None)
Quarter: 2009Q4

REPORT INFORMATION
  Report Type: 
  Country: None (occurrence: None)
  Receive Date: 20091029
  Receipt Date: 20091016
  Transmission Date: 20100525
  Serious: Yes (Hospitalization)
  Sender: FDA-Public Use
  Company Number: GB-ELI_LILLY_AND_COMPANY-GB200909003129

PATIENT
  Sex: Male
  Weight: 94.4 kg

DRUGS (10)
  1. BYETTA [Suspect]
     Indication: OBESITY
     Dosage: 10 UG, 2/D
     Route: 058
     Dates: start: 20090219, end: 20090701
  2. METFORMIN HCL [Concomitant]
     Indication: TYPE 2 DIABETES MELLITUS
     Dosage: 500 MG, UNK
     Route: 048
  3. ASPIRIN [Concomitant]
     Indication: MYOCARDIAL ISCHAEMIA
     Dosage: 75 MG, UNK
     Route: 048
  4. ATENOLOL [Concomitant]
     Indication: MYOCARDIAL ISCHAEMIA
     Dosage: 100 MG, UNK
     Route: 048
  5. LISINOPRIL [Concomitant]
     Indication: HYPERTENSION
     Dosage: 10 MG, UNK
     Route: 048
  6. ATORVASTATIN [Concomitant]
     Dosage: 10 MG, UNK
     Route: 048
  7. BEZALIP-MONO [Concomitant]
     Dosage: 60 MG, DAILY (1/D)
  8. NITROGLYCERIN [Concomitant]
  9. DOTHIEPIN [Concomitant]
     Dosage: 50 MG, DAILY (1/D)
  10. LANSOPRAZOLE [Concomitant]
     Dosage: 30 MG, DAILY (1/D)

REACTIONS (5)
  - BLOOD MAGNESIUM DECREASED [None]
  - CONVULSION [None]
  - OFF LABEL USE [None]
  - VOMITING [None]
  - WEIGHT DECREASED [None]
